FAERS Safety Report 5664120-6 (Version None)
Quarter: 2008Q1

REPORT INFORMATION
  Report Type: 
  Country: None (occurrence: None)
  Receive Date: 20080314
  Receipt Date: 20080304
  Transmission Date: 20080703
  Serious: Yes (Other)
  Sender: FDA-Public Use
  Company Number: US-ROCHE-542940

PATIENT
  Age: 68 Year
  Sex: Female

DRUGS (2)
  1. BONIVA [Suspect]
     Indication: OSTEOPOROSIS
     Route: 065
     Dates: start: 20070501
  2. BONIVA [Suspect]
     Dosage: PATIENT RECEIVED MOST RECENT INJECTION ON 5 FEB 2008.
     Route: 065

REACTIONS (1)
  - THROAT CANCER [None]
